FAERS Safety Report 21744372 (Version 1)
Quarter: 2022Q4

REPORT INFORMATION
  Report Type: Spontaneous
  Country: US (occurrence: US)
  Receive Date: 20221218
  Receipt Date: 20221218
  Transmission Date: 20230112
  Serious: No
  Sender: FDA-Public Use
  Company Number: US-JNJFOC-20221232713

PATIENT
  Sex: Female

DRUGS (2)
  1. OPSUMIT [Suspect]
     Active Substance: MACITENTAN
     Indication: Product used for unknown indication
     Route: 048
  2. PREDNISONE [Concomitant]
     Active Substance: PREDNISONE
     Indication: Cough
     Route: 065

REACTIONS (2)
  - Cough [Not Recovered/Not Resolved]
  - Painful respiration [Not Recovered/Not Resolved]
